FAERS Safety Report 9159919 (Version 2)
Quarter: 2013Q1

REPORT INFORMATION
  Report Type: Spontaneous
  Country: US (occurrence: US)
  Receive Date: 20130313
  Receipt Date: 20130326
  Transmission Date: 20140127
  Serious: Yes (Other)
  Sender: FDA-Public Use
  Company Number: US-PFIZER INC-2013081961

PATIENT
  Age: 70 Year
  Sex: Female
  Weight: 47.62 kg

DRUGS (4)
  1. NEURONTIN [Suspect]
     Dosage: UNK
     Dates: start: 1999
  2. LYRICA [Suspect]
     Dosage: UNK
     Dates: start: 2005
  3. CALTRATE WITH VITAMIN D [Suspect]
     Indication: BONE DISORDER
     Dosage: UNK
     Route: 048
     Dates: start: 201302, end: 20130307
  4. ADVIL [Concomitant]
     Indication: HEADACHE
     Dosage: UNK
     Route: 048

REACTIONS (10)
  - Aphagia [Unknown]
  - Haemorrhage [Unknown]
  - Syncope [Unknown]
  - Limb deformity [Unknown]
  - Malaise [Unknown]
  - Pyrexia [Unknown]
  - Nausea [Not Recovered/Not Resolved]
  - Nail disorder [Unknown]
  - Drug hypersensitivity [Unknown]
  - Skin disorder [Unknown]
